FAERS Safety Report 6546510-2 (Version None)
Quarter: 2010Q1

REPORT INFORMATION
  Report Type: 
  Country: None (occurrence: None)
  Receive Date: 20100122
  Receipt Date: 20100115
  Transmission Date: 20100710
  Serious: Yes (Other)
  Sender: FDA-Public Use
  Company Number: US-ASTRAZENECA-2010SE02400

PATIENT
  Age: 983 Month
  Sex: Male
  Weight: 79.8 kg

DRUGS (3)
  1. CRESTOR [Suspect]
     Indication: BLOOD CHOLESTEROL INCREASED
     Route: 048
     Dates: start: 20090901
  2. PLAVIX [Concomitant]
     Dates: start: 20091201
  3. ASPIRIN [Concomitant]

REACTIONS (1)
  - CORONARY ARTERIAL STENT INSERTION [None]
